FAERS Safety Report 16197166 (Version 2)
Quarter: 2020Q2

REPORT INFORMATION
  Report Type: Spontaneous
  Country: US (occurrence: US)
  Receive Date: 20190415
  Receipt Date: 20200630
  Transmission Date: 20200713
  Serious: No
  Sender: FDA-Public Use
  Company Number: US-PFIZER INC-2019157759

PATIENT
  Age: 51 Year
  Sex: Female
  Weight: 72.57 kg

DRUGS (1)
  1. GABAPENTIN. [Suspect]
     Active Substance: GABAPENTIN
     Indication: NERVE INJURY
     Dosage: 400 MG, 2 TO 3 TIMES A DAY

REACTIONS (1)
  - Drug ineffective [Unknown]
